FAERS Safety Report 14239305 (Version 4)
Quarter: 2018Q1

REPORT INFORMATION
  Report Type: Spontaneous
  Country: DZ (occurrence: DZ)
  Receive Date: 20171130
  Receipt Date: 20180323
  Transmission Date: 20180508
  Serious: Yes (Hospitalization, Other)
  Sender: FDA-Public Use
  Company Number: DZ-MYLANLABS-2017M1075327

PATIENT
  Age: 13 Year
  Sex: Male
  Weight: 25 kg

DRUGS (8)
  1. PRECORTIL [Concomitant]
     Indication: RENAL TRANSPLANT
     Dosage: 5 MG, UNK
     Dates: start: 20121211
  2. FLAGYL [Concomitant]
     Active Substance: METRONIDAZOLE\METRONIDAZOLE HYDROCHLORIDE
     Indication: PRODUCT USED FOR UNKNOWN INDICATION
     Dosage: UNK
     Dates: start: 20171023, end: 20171106
  3. CIPROLON                           /00697202/ [Concomitant]
     Indication: PRODUCT USED FOR UNKNOWN INDICATION
     Dosage: UNK
     Dates: start: 20171027, end: 20171109
  4. MMF [Concomitant]
     Active Substance: MYCOPHENOLATE MOFETIL
     Indication: RENAL TRANSPLANT
     Dosage: 1 G, UNK
     Dates: start: 20121211
  5. CLAFORAN [Concomitant]
     Active Substance: CEFOTAXIME SODIUM
     Indication: PRODUCT USED FOR UNKNOWN INDICATION
     Dosage: UNK
     Dates: start: 20171027, end: 20171109
  6. CYSTAGON [Suspect]
     Active Substance: CYSTEAMINE BITARTRATE
     Indication: CYSTINOSIS
     Dosage: 1500 MG, QD. 3 TABS, 2 TABS, 3 TABS, 2 TABS EVERY 6 HRS
     Route: 048
     Dates: start: 2005, end: 20171108
  7. CYSTAGON [Suspect]
     Active Substance: CYSTEAMINE BITARTRATE
     Dosage: 750 MG, QD
     Route: 048
     Dates: start: 20171127
  8. PROGRAF [Concomitant]
     Active Substance: TACROLIMUS\TACROLIMUS ANHYDROUS
     Indication: RENAL TRANSPLANT
     Dosage: 3 MG, UNK
     Dates: start: 20121211

REACTIONS (9)
  - Renal transplant [Unknown]
  - Renal tubular acidosis [Not Recovered/Not Resolved]
  - Cholecystitis [Unknown]
  - Inappropriate schedule of drug administration [Unknown]
  - Tubulointerstitial nephritis [Recovered/Resolved]
  - Hypersensitivity [Recovered/Resolved]
  - Underdose [Unknown]
  - Diarrhoea [Recovered/Resolved]
  - Overdose [Unknown]

NARRATIVE: CASE EVENT DATE: 2005
